FAERS Safety Report 13443054 (Version 2)
Quarter: 2017Q2

REPORT INFORMATION
  Report Type: Spontaneous
  Country: US (occurrence: US)
  Receive Date: 20170414
  Receipt Date: 20170512
  Transmission Date: 20170830
  Serious: Yes (Death, Hospitalization, Other)
  Sender: FDA-Public Use
  Company Number: US-JAZZ-2017-US-004603

PATIENT
  Sex: Female

DRUGS (3)
  1. PRIALT [Suspect]
     Active Substance: ZICONOTIDE ACETATE
     Dosage: 0.075 ?G, QH
     Route: 037
     Dates: start: 20161222
  2. PRIALT [Suspect]
     Active Substance: ZICONOTIDE ACETATE
     Dosage: 0.083 ?G, QH
     Route: 037
     Dates: start: 20161228
  3. PRIALT [Suspect]
     Active Substance: ZICONOTIDE ACETATE
     Indication: PRODUCT USED FOR UNKNOWN INDICATION
     Dosage: 0.062 ?G, QH
     Route: 037
     Dates: start: 20161213

REACTIONS (3)
  - Chronic obstructive pulmonary disease [Fatal]
  - Clostridium difficile infection [Fatal]
  - Hospitalisation [Unknown]
